FAERS Safety Report 8127479-6 (Version None)
Quarter: 2011Q4

REPORT INFORMATION
  Report Type: 
  Country: None (occurrence: None)
  Receive Date: 20111227
  Receipt Date: 20111111
  Transmission Date: 20120403
  Serious: No
  Sender: FDA-Public Use
  Company Number: PHEH2011US008780

PATIENT
  Age: 48 Year
  Sex: Female

DRUGS (7)
  1. LANTUS [Concomitant]
  2. DIOVAN [Concomitant]
  3. GILENYA [Suspect]
     Indication: MULTIPLE SCLEROSIS
     Dosage: 0.5 MG, QD, ORAL
     Route: 048
  4. CRESTOR [Concomitant]
  5. HYDRALAZINE HCL [Concomitant]
  6. PANTOPRAZOLE [Concomitant]
  7. CARVEDILOL [Concomitant]

REACTIONS (2)
  - ASTHENIA [None]
  - FATIGUE [None]
